FAERS Safety Report 21928024 (Version 2)
Quarter: 2023Q1

REPORT INFORMATION
  Report Type: Report from Study
  Country: JP (occurrence: None)
  Receive Date: 20230130
  Receipt Date: 20230203
  Transmission Date: 20230418
  Serious: Yes (Death)
  Sender: FDA-Public Use
  Company Number: JP-ROCHE-3272584

PATIENT
  Age: 65 Year
  Sex: Female
  Weight: 45.5 kg

DRUGS (11)
  1. TUCATINIB [Suspect]
     Active Substance: TUCATINIB
     Indication: Uterine cancer
     Dosage: LAST DOSE PRIOR TO EVENT ON 20/JAN/2023 RECEIVED 282 TOTAL DOSES AND COMPLETED CYCLE (C) 7 DAY (D)
     Route: 048
     Dates: start: 20220831
  2. TUCATINIB [Suspect]
     Active Substance: TUCATINIB
     Dosage: ON DAY 1 TO 21 OF EACH 21-DAY CYCLE
     Route: 048
     Dates: start: 20220831
  3. TRASTUZUMAB [Suspect]
     Active Substance: TRASTUZUMAB
     Indication: Uterine cancer
     Dosage: OVER 30 MINUTES ON DAY 1 OF EACH CYCLE.?LAST DOSE PRIOR TO EVENT ON 04/JAN/2023
     Route: 041
  4. TRASTUZUMAB [Suspect]
     Active Substance: TRASTUZUMAB
     Dosage: OVER 90 ON DAY 1 OF CYCLE 1
     Route: 042
     Dates: start: 20220831, end: 20220831
  5. TRASTUZUMAB [Suspect]
     Active Substance: TRASTUZUMAB
     Route: 042
  6. TIMOLOL MALEATE [Concomitant]
     Active Substance: TIMOLOL MALEATE
     Dates: start: 2014
  7. EPLERENONE [Concomitant]
     Active Substance: EPLERENONE
     Dates: start: 2010
  8. OLMESARTAN [Concomitant]
     Active Substance: OLMESARTAN
     Dates: start: 2010
  9. LEVOCETIRIZINE HYDROCHLORIDE [Concomitant]
     Active Substance: LEVOCETIRIZINE HYDROCHLORIDE
  10. REBAMIPIDE [Concomitant]
     Active Substance: REBAMIPIDE
     Dates: start: 202104
  11. KETOPROFEN [Concomitant]
     Active Substance: KETOPROFEN
     Dates: start: 20210407

REACTIONS (1)
  - Myocardial ischaemia [Fatal]

NARRATIVE: CASE EVENT DATE: 20230121
